FAERS Safety Report 10210892 (Version 3)
Quarter: 2014Q3

REPORT INFORMATION
  Report Type: Spontaneous
  Country: US (occurrence: US)
  Receive Date: 20140602
  Receipt Date: 20140902
  Transmission Date: 20150326
  Serious: Yes (Hospitalization)
  Sender: FDA-Public Use
  Company Number: US-BAYER-2014-082081

PATIENT
  Age: 23 Year
  Sex: Female

DRUGS (1)
  1. YAZ [Suspect]
     Active Substance: DROSPIRENONE\ETHINYL ESTRADIOL
     Indication: CONTRACEPTION
     Dosage: UNK
     Dates: start: 2007, end: 2009

REACTIONS (9)
  - Thrombosis [None]
  - Pain in extremity [None]
  - Injury [None]
  - General physical health deterioration [None]
  - Deep vein thrombosis [None]
  - Pain [None]
  - Abdominal pain upper [None]
  - Emotional distress [None]
  - Dyspnoea [None]

NARRATIVE: CASE EVENT DATE: 2009
